FAERS Safety Report 25711533 (Version 1)
Quarter: 2025Q3

REPORT INFORMATION
  Report Type: Report from Study
  Country: US (occurrence: US)
  Receive Date: 20250821
  Receipt Date: 20250821
  Transmission Date: 20251020
  Serious: No
  Sender: INCYTE
  Company Number: US-INCYTE CORPORATION-2025IN008855

PATIENT

DRUGS (1)
  1. JAKAFI [Suspect]
     Active Substance: RUXOLITINIB
     Indication: Essential thrombocythaemia
     Dosage: 2.5 MILLIGRAM, BID, EVERY OTHER DAY
     Route: 065

REACTIONS (3)
  - Ill-defined disorder [Unknown]
  - Wrong technique in product usage process [Unknown]
  - Off label use [Unknown]
